FAERS Safety Report 20797798 (Version 1)
Quarter: 2022Q2

REPORT INFORMATION
  Report Type: Spontaneous
  Country: CA (occurrence: CA)
  Receive Date: 20220506
  Receipt Date: 20220506
  Transmission Date: 20220721
  Serious: Yes (Other)
  Sender: FDA-Public Use
  Company Number: CA-ELI_LILLY_AND_COMPANY-CA202204013006

PATIENT
  Age: 53 Year
  Sex: Female

DRUGS (2)
  1. HUMATROPE [Interacting]
     Active Substance: SOMATROPIN
     Indication: Product used for unknown indication
     Dosage: UNK UNK, UNKNOWN
     Route: 065
     Dates: start: 2014
  2. PREDNISONE [Interacting]
     Active Substance: PREDNISONE
     Indication: Product used for unknown indication
     Dosage: UNK UNK, UNKNOWN
     Route: 065
     Dates: start: 20210801

REACTIONS (3)
  - Blindness [Unknown]
  - Cataract [Unknown]
  - Drug interaction [Unknown]

NARRATIVE: CASE EVENT DATE: 20211101
